FAERS Safety Report 6542812-4 (Version None)
Quarter: 2010Q1

REPORT INFORMATION
  Report Type: 
  Country: None (occurrence: None)
  Receive Date: 20100114
  Receipt Date: 20090814
  Transmission Date: 20100710
  Serious: Yes (Other)
  Sender: FDA-Public Use
  Company Number: 2010000085

PATIENT
  Age: 22 Year
  Sex: Female

DRUGS (2)
  1. PROVIGIL [Suspect]
     Dosage: (100 MG),ORAL
     Route: 048
  2. ERYMAX (ERYTHROMYCIN) (CAPSULE) [Suspect]
     Indication: INFECTED BITES
     Dosage: 2000 MG (500 MG,4 IN 1 D),ORAL
     Route: 048
     Dates: start: 20090728, end: 20090729

REACTIONS (2)
  - INFECTED BITES [None]
  - MALAISE [None]
